FAERS Safety Report 8659433 (Version 2)
Quarter: 2013Q2

REPORT INFORMATION
  Report Type: Spontaneous
  Country: US (occurrence: US)
  Receive Date: 20120711
  Receipt Date: 20130412
  Transmission Date: 20140414
  Serious: Yes (Other)
  Sender: FDA-Public Use
  Company Number: PHHY2012US058191

PATIENT
  Age: 65 Year
  Sex: Female

DRUGS (1)
  1. HALOPERIDOL [Suspect]
     Indication: MULTIPLE SCLEROSIS RELAPSE
     Dosage: 19 MG, TOTAL IN 24 HOURS
     Route: 042

REACTIONS (12)
  - Renal failure acute [Recovering/Resolving]
  - Dementia with Lewy bodies [Recovering/Resolving]
  - Amnesia [Recovering/Resolving]
  - Hallucination, visual [Recovering/Resolving]
  - Neuroleptic malignant syndrome [Recovering/Resolving]
  - Pyrexia [Recovering/Resolving]
  - Dehydration [Recovering/Resolving]
  - Muscle rigidity [Recovering/Resolving]
  - Myoclonus [Recovering/Resolving]
  - Bradykinesia [Recovering/Resolving]
  - Depression [Recovering/Resolving]
  - Depressive symptom [Recovering/Resolving]
